FAERS Safety Report 9329976 (Version 2)
Quarter: 2013Q3

REPORT INFORMATION
  Report Type: Report from Study
  Country: US (occurrence: US)
  Receive Date: 20130604
  Receipt Date: 20130805
  Transmission Date: 20140515
  Serious: Yes (Death)
  Sender: FDA-Public Use
  Company Number: US-TEVA-409641USA

PATIENT
  Sex: Female

DRUGS (16)
  1. CLOZAPINE [Suspect]
     Route: 048
  2. COGENTIN [Concomitant]
  3. ATIVAN [Concomitant]
  4. VITAMIN E [Concomitant]
  5. MULTIVITAMIN [Concomitant]
  6. WELLBUTRIN XL [Concomitant]
  7. PROZAC [Concomitant]
  8. HALDOL [Concomitant]
  9. K-DUR [Concomitant]
  10. PRO-AIR HFA [Concomitant]
  11. QVAR [Concomitant]
  12. PEPCID [Concomitant]
  13. ALBUTEROL [Concomitant]
  14. METOPROLOL [Concomitant]
  15. FLUOCINOLONE ACETONIDE [Concomitant]
  16. LASIX [Concomitant]

REACTIONS (1)
  - Death [Fatal]
